FAERS Safety Report 5448855-6 (Version None)
Quarter: 2007Q3

REPORT INFORMATION
  Report Type: 
  Country: None (occurrence: None)
  Receive Date: 20070911
  Receipt Date: 20070724
  Transmission Date: 20080115
  Serious: No
  Sender: FDA-Public Use
  Company Number: US-BRISTOL-MYERS SQUIBB COMPANY-13855911

PATIENT
  Age: 62 Year
  Sex: Female
  Weight: 56 kg

DRUGS (9)
  1. EMSAM [Suspect]
     Indication: DEPRESSION
     Dosage: FEB-MARCH 2007 STARTED ON 6MG/24HR;1 MONTH LATER INCR TO 9MG/24HR; 2-3 WEEKS LATER INCR TO 12MG/24HR
     Route: 062
  2. ZOCOR [Concomitant]
  3. XANAX [Concomitant]
  4. VALTREX [Concomitant]
  5. PRILOSEC [Concomitant]
  6. CALCIUM [Concomitant]
  7. MAGNESIUM SULFATE [Concomitant]
  8. VITAMIN B [Concomitant]
  9. MULTI-VITAMIN [Concomitant]

REACTIONS (3)
  - ANXIETY [None]
  - DRUG INEFFECTIVE [None]
  - INSOMNIA [None]
